FAERS Safety Report 7460551-2 (Version None)
Quarter: 2011Q2

REPORT INFORMATION
  Report Type: 
  Country: None (occurrence: None)
  Receive Date: 20110505
  Receipt Date: 20110422
  Transmission Date: 20111010
  Serious: No
  Sender: FDA-Public Use
  Company Number: US-B.I. PHARMACEUTICALS,INC./RIDGEFIELD-2011-BP-11539BP

PATIENT
  Sex: Female

DRUGS (6)
  1. KLONOPIN [Concomitant]
     Indication: ANXIETY
  2. HYDROCHLOROTHIAZIDE [Concomitant]
     Indication: OEDEMA PERIPHERAL
  3. PROZAC [Concomitant]
     Indication: DEPRESSION
  4. ATENOLOL [Concomitant]
     Indication: PALPITATIONS
  5. ZANTAC 75 [Suspect]
     Indication: GASTROOESOPHAGEAL REFLUX DISEASE
     Route: 048
     Dates: start: 20110421
  6. PROZAC [Concomitant]
     Indication: OBSESSIVE-COMPULSIVE DISORDER

REACTIONS (1)
  - RESTLESS LEGS SYNDROME [None]
